FAERS Safety Report 12557457 (Version 1)
Quarter: 2016Q3

REPORT INFORMATION
  Report Type: Spontaneous
  Country: FR (occurrence: FR)
  Receive Date: 20160714
  Receipt Date: 20160714
  Transmission Date: 20161109
  Serious: Yes (Death, Other)
  Sender: FDA-Public Use
  Company Number: FR-MYLANLABS-2016M1029127

PATIENT

DRUGS (5)
  1. TRETINOIN. [Suspect]
     Active Substance: TRETINOIN
     Indication: ACUTE PROMYELOCYTIC LEUKAEMIA
     Dosage: 45 MG/M2/DAY
     Route: 065
     Dates: start: 200704
  2. IDARUBICIN [Concomitant]
     Active Substance: IDARUBICIN
     Dosage: FOR 3 DAYS
     Route: 065
  3. CYTARABINE. [Concomitant]
     Active Substance: CYTARABINE
     Indication: ACUTE PROMYELOCYTIC LEUKAEMIA
     Dosage: 200 MG/M2/DAY FOR 7 DAYS
     Route: 065
     Dates: start: 200704
  4. TRETINOIN. [Suspect]
     Active Substance: TRETINOIN
     Dosage: FOR 15 DAYS
     Route: 065
  5. IDARUBICIN [Concomitant]
     Active Substance: IDARUBICIN
     Indication: ACUTE PROMYELOCYTIC LEUKAEMIA
     Dosage: 12 MG/M2/DAY FOR 3 DAYS
     Route: 065
     Dates: start: 200704

REACTIONS (2)
  - Myelodysplastic syndrome [Fatal]
  - Acute myeloid leukaemia [Fatal]
